FAERS Safety Report 11271881 (Version 1)
Quarter: 2015Q3

REPORT INFORMATION
  Report Type: Spontaneous
  Country: CZ (occurrence: CZ)
  Receive Date: 20150715
  Receipt Date: 20150715
  Transmission Date: 20151125
  Serious: Yes (Other)
  Sender: FDA-Public Use
  Company Number: CZ-ACCORD-032135

PATIENT
  Sex: Female

DRUGS (6)
  1. BEVACIZUMAB [Suspect]
     Active Substance: BEVACIZUMAB
     Indication: RECTAL ADENOCARCINOMA
     Dates: start: 200907, end: 201004
  2. OXALIPLATIN. [Suspect]
     Active Substance: OXALIPLATIN
     Indication: RECTAL ADENOCARCINOMA
     Dates: start: 200907, end: 201004
  3. FOLINIC ACID [Suspect]
     Active Substance: LEUCOVORIN
     Indication: RECTAL ADENOCARCINOMA
     Dosage: TOTAL 7 CYCLES OF CHEMOTHERAPY REGIMEN FOLFIRI
     Dates: start: 201210, end: 201302
  4. IRINOTECAN [Suspect]
     Active Substance: IRINOTECAN
     Indication: RECTAL ADENOCARCINOMA
     Dosage: TOTAL 7 CYCLES OF CHEMOTHERAPY REGIMEN FOLFIRI
     Dates: start: 201210, end: 201302
  5. CAPECITABINE. [Suspect]
     Active Substance: CAPECITABINE
     Indication: RECTAL ADENOCARCINOMA
     Dates: start: 200907, end: 201004
  6. FLUOROURACIL. [Suspect]
     Active Substance: FLUOROURACIL
     Indication: RECTAL ADENOCARCINOMA
     Dosage: 7 CYCLES OF CHEMOTHERAPY REGIMEN FOLFIRI
     Dates: start: 201210, end: 201302

REACTIONS (6)
  - Nausea [Unknown]
  - Neutropenia [Unknown]
  - Thrombosis [Unknown]
  - Neurotoxicity [Unknown]
  - Conjunctivitis [Unknown]
  - Diarrhoea [Unknown]
